FAERS Safety Report 5571372-X (Version None)
Quarter: 2007Q4

REPORT INFORMATION
  Report Type: 
  Country: None (occurrence: None)
  Receive Date: 20071221
  Receipt Date: 20070830
  Transmission Date: 20080405
  Serious: No
  Sender: FDA-Public Use
  Company Number: A0677758A

PATIENT
  Age: 74 Year
  Sex: Female

DRUGS (5)
  1. FLUTICASONE PROPIONATE [Suspect]
     Route: 045
  2. ZETIA [Concomitant]
  3. ACIPHEX [Concomitant]
  4. CELEBREX [Concomitant]
  5. TRICOR [Concomitant]

REACTIONS (1)
  - EPISTAXIS [None]
